FAERS Safety Report 6164162-0 (Version None)
Quarter: 2009Q2

REPORT INFORMATION
  Report Type: 
  Country: None (occurrence: None)
  Receive Date: 20090420
  Receipt Date: 20090409
  Transmission Date: 20091009
  Serious: Yes (Hospitalization)
  Sender: FDA-Public Use
  Company Number: ADR1282009

PATIENT
  Age: 38 Year
  Sex: Male

DRUGS (3)
  1. AMLODIPINE [Suspect]
     Indication: OVERDOSE
     Dosage: 630 MG  (OVERDOSE)
  2. CITALOPRAM [Suspect]
  3. ZOPICLONE 300 MG [Concomitant]

REACTIONS (6)
  - COMA [None]
  - EJECTION FRACTION DECREASED [None]
  - HYPOTENSION [None]
  - LACTIC ACIDOSIS [None]
  - MULTIPLE DRUG OVERDOSE [None]
  - PNEUMONIA [None]
